FAERS Safety Report 11926836 (Version 1)
Quarter: 2016Q1

REPORT INFORMATION
  Report Type: Spontaneous
  Country: US (occurrence: None)
  Receive Date: 20160115
  Receipt Date: 20160115
  Transmission Date: 20160526
  Serious: Yes (Disabling)
  Sender: FDA-Public Use
  Company Number: None

PATIENT
  Age: 58 Year
  Sex: Male
  Weight: 105.69 kg

DRUGS (9)
  1. CYMBALTA [Suspect]
     Active Substance: DULOXETINE HYDROCHLORIDE
     Indication: MUSCULOSKELETAL PAIN
     Route: 048
     Dates: start: 20110601, end: 20151212
  2. BENADRYL [Concomitant]
     Active Substance: DIPHENHYDRAMINE HYDROCHLORIDE
  3. COQ10 [Concomitant]
     Active Substance: UBIDECARENONE
  4. MORPHINE SULFATE. [Concomitant]
     Active Substance: MORPHINE SULFATE
  5. ALFUZOSIN [Concomitant]
     Active Substance: ALFUZOSIN
  6. SAW PALMETTO [Concomitant]
     Active Substance: SAW PALMETTO
  7. QUERCETIN [Concomitant]
     Active Substance: QUERCETIN
  8. HYDROMORPHONE [Concomitant]
     Active Substance: HYDROMORPHONE
  9. POTASSIUM CITRATE. [Concomitant]
     Active Substance: POTASSIUM CITRATE

REACTIONS (15)
  - Nausea [None]
  - Dizziness [None]
  - Depression [None]
  - Hot flush [None]
  - Abdominal pain [None]
  - Decreased appetite [None]
  - Hyperacusis [None]
  - Tearfulness [None]
  - Hyperhidrosis [None]
  - Disturbance in attention [None]
  - Restlessness [None]
  - Weight decreased [None]
  - Withdrawal syndrome [None]
  - Anxiety [None]
  - Photophobia [None]

NARRATIVE: CASE EVENT DATE: 20151213
